FAERS Safety Report 4685443-3 (Version None)
Quarter: 2005Q2

REPORT INFORMATION
  Report Type: 
  Country: None (occurrence: None)
  Receive Date: 20050603
  Receipt Date: 20050526
  Transmission Date: 20051028
  Serious: Yes (Hospitalization, Other)
  Sender: FDA-Public Use
  Company Number: 2005-05-1954

PATIENT
  Age: 29 Year
  Sex: Female

DRUGS (3)
  1. AERIUS (DESLORATADINE) TABLETS   ^CLARINEX^ [Suspect]
     Indication: MULTIPLE ALLERGIES
     Dosage: 5 MG QD ORAL
     Route: 048
  2. ALTACE [Concomitant]
  3. HYDROCHLOROTHIAZIDE [Concomitant]

REACTIONS (2)
  - BLOOD PRESSURE SYSTOLIC INCREASED [None]
  - SYNCOPE [None]
